FAERS Safety Report 15632281 (Version 1)
Quarter: 2018Q4

REPORT INFORMATION
  Report Type: Spontaneous
  Country: US (occurrence: US)
  Receive Date: 20181119
  Receipt Date: 20181119
  Transmission Date: 20190205
  Serious: No
  Sender: FDA-Public Use
  Company Number: US-BAYER-2018-213035

PATIENT
  Age: 63 Year
  Sex: Female
  Weight: 53.97 kg

DRUGS (1)
  1. CLARITIN [Suspect]
     Active Substance: LORATADINE
     Indication: NASOPHARYNGITIS
     Dosage: UNK
     Route: 048

REACTIONS (3)
  - Underdose [Unknown]
  - Off label use [Unknown]
  - Product use in unapproved indication [Unknown]
